FAERS Safety Report 12981161 (Version 1)
Quarter: 2016Q4

REPORT INFORMATION
  Report Type: Spontaneous
  Country: US (occurrence: US)
  Receive Date: 20161129
  Receipt Date: 20161129
  Transmission Date: 20170207
  Serious: No
  Sender: FDA-Public Use
  Company Number: US-AUROBINDO-AUR-APL-2016-03810

PATIENT
  Age: 78 Year
  Sex: Female
  Weight: 65.76 kg

DRUGS (5)
  1. SYNTHROID [Concomitant]
     Active Substance: LEVOTHYROXINE SODIUM
     Indication: PRODUCT USED FOR UNKNOWN INDICATION
     Route: 065
  2. TELMISARTAN. [Concomitant]
     Active Substance: TELMISARTAN
     Indication: PRODUCT USED FOR UNKNOWN INDICATION
     Route: 065
  3. GABAPENTIN TABLETS USP 600MG [Suspect]
     Active Substance: GABAPENTIN
     Indication: SPINAL COLUMN STENOSIS
     Dosage: 600 MG, 3 TIMES A DAY
     Route: 048
     Dates: end: 20160310
  4. GABAPENTIN TABLETS USP 600MG [Suspect]
     Active Substance: GABAPENTIN
     Indication: BURNING MOUTH SYNDROME
  5. HYDROCHLOROTHIAZIDE. [Concomitant]
     Active Substance: HYDROCHLOROTHIAZIDE
     Indication: PRODUCT USED FOR UNKNOWN INDICATION
     Route: 065

REACTIONS (1)
  - Drug ineffective for unapproved indication [Recovered/Resolved]
